FAERS Safety Report 16146110 (Version 6)
Quarter: 2019Q3

REPORT INFORMATION
  Report Type: Spontaneous
  Country: FR (occurrence: FR)
  Receive Date: 20190402
  Receipt Date: 20190808
  Transmission Date: 20191004
  Serious: Yes (Other)
  Sender: FDA-Public Use
  Company Number: FR-PROVELL PHARMACEUTICALS-2065105

PATIENT
  Age: 50 Year
  Sex: Female
  Weight: 83 kg

DRUGS (9)
  1. EUTHYROX [Suspect]
     Active Substance: LEVOTHYROXINE SODIUM
     Indication: HYPOTHYROIDISM
     Dates: start: 2017, end: 2017
  2. EUTHYROX [Suspect]
     Active Substance: LEVOTHYROXINE SODIUM
     Dates: start: 2017, end: 2017
  3. EUTHYROX [Suspect]
     Active Substance: LEVOTHYROXINE SODIUM
     Dates: start: 2017, end: 2017
  4. EUTHYROX [Suspect]
     Active Substance: LEVOTHYROXINE SODIUM
     Dates: start: 2017
  5. VITAMIN D [Concomitant]
     Active Substance: VITAMIN D NOS
  6. TARDYFERON [Concomitant]
     Active Substance: FERROUS SULFATE
  7. EUTHYROX [Suspect]
     Active Substance: LEVOTHYROXINE SODIUM
     Dates: start: 2017, end: 2017
  8. ATORVASTATIN [Concomitant]
     Active Substance: ATORVASTATIN
  9. IRBESARTAN. [Concomitant]
     Active Substance: IRBESARTAN

REACTIONS (25)
  - Anxiety [None]
  - Overdose [None]
  - Phlebitis [None]
  - Thyroxine free increased [None]
  - Oedema peripheral [None]
  - C-reactive protein increased [Not Recovered/Not Resolved]
  - Laryngeal stenosis [None]
  - Thyroid function test abnormal [None]
  - Vertigo [None]
  - Asthenia [None]
  - Blood thyroid stimulating hormone decreased [Recovered/Resolved]
  - Palpitations [None]
  - Weight loss poor [None]
  - Complex regional pain syndrome [None]
  - Haemoglobin decreased [Not Recovered/Not Resolved]
  - Throat irritation [None]
  - Insomnia [None]
  - Tenosynovitis [None]
  - Drug intolerance [None]
  - Suffocation feeling [None]
  - Sleep disorder [None]
  - Musculoskeletal discomfort [None]
  - Red blood cell sedimentation rate increased [None]
  - Fatigue [None]
  - Pain in extremity [Not Recovered/Not Resolved]

NARRATIVE: CASE EVENT DATE: 2017
